FAERS Safety Report 16920337 (Version 1)
Quarter: 2019Q4

REPORT INFORMATION
  Report Type: Spontaneous
  Country: JP (occurrence: JP)
  Receive Date: 20191015
  Receipt Date: 20191015
  Transmission Date: 20200122
  Serious: Yes (Other)
  Sender: FDA-Public Use
  Company Number: PHJP2019JP012953

PATIENT
  Sex: Female

DRUGS (2)
  1. GLIVEC [Suspect]
     Active Substance: IMATINIB MESYLATE
     Indication: LEUKAEMIA
     Dosage: UNK
     Route: 048
  2. SPRYCEL [Suspect]
     Active Substance: DASATINIB
     Indication: LEUKAEMIA
     Dosage: UNK
     Route: 065

REACTIONS (6)
  - Hair colour changes [Unknown]
  - Arthralgia [Unknown]
  - Hepatic function abnormal [Unknown]
  - Pyrexia [Unknown]
  - Renal impairment [Unknown]
  - Diarrhoea [Unknown]
